FAERS Safety Report 7943000-7 (Version None)
Quarter: 2011Q4

REPORT INFORMATION
  Report Type: 
  Country: None (occurrence: None)
  Receive Date: 20111128
  Receipt Date: 20111117
  Transmission Date: 20120403
  Serious: Yes (Death)
  Sender: FDA-Public Use
  Company Number: US-ACTELION-A-US2011-57253

PATIENT

DRUGS (4)
  1. ENOXAPARIN [Concomitant]
  2. TRACLEER [Suspect]
     Indication: PULMONARY ARTERIAL HYPERTENSION
     Dosage: UNK
     Route: 048
     Dates: start: 20111116, end: 20111117
  3. SILDENAFIL [Concomitant]
  4. PLAVIX [Concomitant]

REACTIONS (1)
  - DEATH [None]
